FAERS Safety Report 10919896 (Version 1)
Quarter: 2015Q1

REPORT INFORMATION
  Report Type: Spontaneous
  Country: IN (occurrence: IN)
  Receive Date: 20150317
  Receipt Date: 20150317
  Transmission Date: 20150721
  Serious: Yes (Other)
  Sender: FDA-Public Use
  Company Number: IN-AUROBINDO-AUR-APL-2015-02194

PATIENT
  Sex: Male

DRUGS (5)
  1. FLUOXETINE CAPSULES USP 20 MG [Suspect]
     Active Substance: FLUOXETINE HYDROCHLORIDE
     Indication: GENERALISED ANXIETY DISORDER
     Dosage: 20 MG, ONCE A DAY
     Route: 065
  2. SERTRALINE TABLET [Suspect]
     Active Substance: SERTRALINE HYDROCHLORIDE
     Dosage: 50 MG, TWO TIMES A DAY
     Route: 065
  3. PROPRANOLOL                        /00030002/ [Concomitant]
     Indication: PRODUCT USED FOR UNKNOWN INDICATION
     Dosage: 40 MG, UNK
     Route: 065
  4. BUSPIRONE                          /00803202/ [Concomitant]
     Indication: PRODUCT USED FOR UNKNOWN INDICATION
     Dosage: 5 MG, 3 TIMES A DAY
     Route: 065
  5. SERTRALINE TABLET [Suspect]
     Active Substance: SERTRALINE HYDROCHLORIDE
     Indication: PRODUCT USED FOR UNKNOWN INDICATION
     Dosage: 100 MG, UNK
     Route: 065

REACTIONS (21)
  - Parkinsonism [Not Recovered/Not Resolved]
  - Tremor [Not Recovered/Not Resolved]
  - Endotracheal intubation [Unknown]
  - Generalised anxiety disorder [Recovering/Resolving]
  - Asthenia [Recovering/Resolving]
  - Anxiety [Recovering/Resolving]
  - Alcohol problem [Recovering/Resolving]
  - Psychomotor skills impaired [Not Recovered/Not Resolved]
  - Thyroid disorder [Recovering/Resolving]
  - Dysphonia [Unknown]
  - Insomnia [Recovering/Resolving]
  - Posture abnormal [Unknown]
  - Treatment noncompliance [Unknown]
  - Chest discomfort [Recovering/Resolving]
  - Flushing [Recovering/Resolving]
  - Confusional state [Recovering/Resolving]
  - Speech disorder [Not Recovered/Not Resolved]
  - Activities of daily living impaired [Recovering/Resolving]
  - Head discomfort [Not Recovered/Not Resolved]
  - Tension [Recovering/Resolving]
  - Formication [None]

NARRATIVE: CASE EVENT DATE: 200912
